FAERS Safety Report 20331149 (Version 2)
Quarter: 2022Q4

REPORT INFORMATION
  Report Type: Spontaneous
  Country: CA (occurrence: None)
  Receive Date: 20220113
  Receipt Date: 20221222
  Transmission Date: 20230113
  Serious: Yes (Other)
  Sender: FDA-Public Use
  Company Number: CA-ROCHE-2998023

PATIENT
  Sex: Female

DRUGS (46)
  1. RITUXIMAB [Suspect]
     Active Substance: RITUXIMAB
     Indication: Rheumatoid arthritis
     Route: 041
  2. RITUXIMAB [Suspect]
     Active Substance: RITUXIMAB
     Indication: Immunoglobulin G4 related disease
     Route: 042
  3. ACETAMINOPHEN [Concomitant]
     Active Substance: ACETAMINOPHEN
     Indication: Premedication
     Route: 048
  4. ACYCLOVIR [Concomitant]
     Active Substance: ACYCLOVIR
  5. ADVAIR HFA [Concomitant]
     Active Substance: FLUTICASONE PROPIONATE\SALMETEROL XINAFOATE
  6. EBASTINE [Concomitant]
     Active Substance: EBASTINE
     Route: 048
  7. EBASTINE [Concomitant]
     Active Substance: EBASTINE
     Route: 048
  8. EBASTINE [Concomitant]
     Active Substance: EBASTINE
     Route: 048
  9. ALTEPLASE [Concomitant]
     Active Substance: ALTEPLASE
  10. ATORVASTATIN [Concomitant]
     Active Substance: ATORVASTATIN
  11. BENADRYL [Concomitant]
     Active Substance: DIPHENHYDRAMINE HYDROCHLORIDE
     Route: 048
  12. BENADRYL [Concomitant]
     Active Substance: DIPHENHYDRAMINE HYDROCHLORIDE
     Route: 042
  13. BENADRYL [Concomitant]
     Active Substance: DIPHENHYDRAMINE HYDROCHLORIDE
     Route: 042
  14. BENADRYL [Concomitant]
     Active Substance: DIPHENHYDRAMINE HYDROCHLORIDE
     Route: 042
  15. BISACODYL [Concomitant]
     Active Substance: BISACODYL
     Route: 065
  16. CARBOXYMETHYLCELLULOSE [Concomitant]
     Active Substance: CARBOXYMETHYLCELLULOSE
  17. COLACE [Concomitant]
     Active Substance: DOCUSATE SODIUM
  18. DALTEPARIN SODIUM [Concomitant]
     Active Substance: DALTEPARIN SODIUM
  19. DIMENHYDRINATE [Concomitant]
     Active Substance: DIMENHYDRINATE
  20. DIPHENHYDRAMINE [Concomitant]
     Active Substance: DIPHENHYDRAMINE
     Indication: Premedication
     Route: 042
  21. ERYTHROMYCIN [Concomitant]
     Active Substance: ERYTHROMYCIN
  22. ESTRADIOL [Concomitant]
     Active Substance: ESTRADIOL
  23. FAMOTIDINE [Concomitant]
     Active Substance: FAMOTIDINE
     Indication: Premedication
     Route: 042
  24. FUROSEMIDE [Concomitant]
     Active Substance: FUROSEMIDE
  25. GRAVOL [Concomitant]
     Active Substance: DIMENHYDRINATE
     Route: 042
  26. GRAVOL [Concomitant]
     Active Substance: DIMENHYDRINATE
     Route: 042
  27. GRAVOL [Concomitant]
     Active Substance: DIMENHYDRINATE
     Route: 042
  28. HYDROMORPHONE [Concomitant]
     Active Substance: HYDROMORPHONE
  29. LACTULOSE [Concomitant]
     Active Substance: LACTULOSE
     Route: 048
  30. LEVOFLOXACIN [Concomitant]
     Active Substance: LEVOFLOXACIN
  31. LORAZEPAM [Concomitant]
     Active Substance: LORAZEPAM
  32. POLYETHYLENE GLYCOL 400\PROPYLENE GLYCOL [Concomitant]
     Active Substance: POLYETHYLENE GLYCOL 400\PROPYLENE GLYCOL
  33. METHYLPREDNISOLONE [Concomitant]
     Active Substance: METHYLPREDNISOLONE
     Indication: Premedication
     Route: 042
  34. METOCLOPRAMIDE HYDROCHLORIDE [Concomitant]
     Active Substance: METOCLOPRAMIDE HYDROCHLORIDE
     Indication: Premedication
     Route: 042
  35. METRONIDAZOLE [Concomitant]
     Active Substance: METRONIDAZOLE
  36. MIRTAZAPINE [Concomitant]
     Active Substance: MIRTAZAPINE
  37. MOMETASONE [Concomitant]
     Active Substance: MOMETASONE
  38. MONTELUKAST [Concomitant]
     Active Substance: MONTELUKAST SODIUM
  39. NALOXONE [Concomitant]
     Active Substance: NALOXONE
  40. ONDANSETRON [Concomitant]
     Active Substance: ONDANSETRON
     Route: 048
  41. PANTOPRAZOLE [Concomitant]
     Active Substance: PANTOPRAZOLE
  42. PREDNISONE [Concomitant]
     Active Substance: PREDNISONE
  43. ALBUTEROL [Concomitant]
     Active Substance: ALBUTEROL
  44. SPIRONOLACTONE [Concomitant]
     Active Substance: SPIRONOLACTONE
  45. VALSARTAN [Concomitant]
     Active Substance: VALSARTAN
  46. ATORVASTATIN CALCIUM [Concomitant]
     Active Substance: ATORVASTATIN CALCIUM

REACTIONS (7)
  - Flushing [Recovered/Resolved]
  - Infusion related reaction [Recovered/Resolved]
  - Nausea [Recovered/Resolved]
  - Pruritus [Recovered/Resolved]
  - Weight increased [Recovered/Resolved]
  - Off label use [Unknown]
  - Intentional product use issue [Unknown]
